FAERS Safety Report 9619791 (Version 2)
Quarter: 2013Q4

REPORT INFORMATION
  Report Type: Report from Study
  Country: JP (occurrence: JP)
  Receive Date: 20131014
  Receipt Date: 20131014
  Transmission Date: 20140711
  Serious: Yes (Hospitalization)
  Sender: FDA-Public Use
  Company Number: JP-TAKEDA-TCI2012A03452

PATIENT
  Age: 69 Year
  Sex: Male
  Weight: 64 kg

DRUGS (30)
  1. LANSOPRAZOLE [Suspect]
     Indication: PROPHYLAXIS AGAINST GASTROINTESTINAL ULCER
     Dosage: 15 MG, QD
     Route: 048
     Dates: start: 20120222
  2. LOXOMARIN [Concomitant]
     Indication: PERIARTHRITIS
     Route: 048
     Dates: start: 20111004
  3. LOXOMARIN [Concomitant]
     Indication: SPINAL LIGAMENT OSSIFICATION
  4. LOXOMARIN [Concomitant]
     Indication: PERIARTHRITIS
  5. LOXOMARIN [Concomitant]
     Indication: MYELOPATHY
  6. LOXOMARIN [Concomitant]
     Indication: LUMBAR SPINAL STENOSIS
  7. REZALTAS [Concomitant]
     Indication: HYPERTENSION
     Route: 048
     Dates: start: 20100905
  8. MYSLEE [Concomitant]
     Indication: INSOMNIA
     Route: 048
     Dates: start: 20100905
  9. CEROCRAL [Concomitant]
     Indication: PERIARTHRITIS
     Route: 048
     Dates: start: 20110728
  10. CEROCRAL [Concomitant]
     Indication: SPINAL LIGAMENT OSSIFICATION
  11. CEROCRAL [Concomitant]
     Indication: MYELOPATHY
  12. CEROCRAL [Concomitant]
     Indication: PERIARTHRITIS
  13. CEROCRAL [Concomitant]
     Indication: LUMBAR SPINAL STENOSIS
  14. VE-NICOTINATE [Concomitant]
     Indication: PERIARTHRITIS
     Route: 048
     Dates: start: 20110728
  15. VE-NICOTINATE [Concomitant]
     Indication: SPINAL LIGAMENT OSSIFICATION
  16. VE-NICOTINATE [Concomitant]
     Indication: MYELOPATHY
  17. VE-NICOTINATE [Concomitant]
     Indication: LUMBAR SPINAL STENOSIS
  18. VE-NICOTINATE [Concomitant]
     Indication: PERIARTHRITIS
  19. RINLAXER [Concomitant]
     Indication: PERIARTHRITIS
     Route: 048
     Dates: start: 20111004
  20. RINLAXER [Concomitant]
     Indication: SPINAL LIGAMENT OSSIFICATION
  21. RINLAXER [Concomitant]
     Indication: MYELOPATHY
  22. RINLAXER [Concomitant]
     Indication: LUMBAR SPINAL STENOSIS
  23. RINLAXER [Concomitant]
     Indication: PERIARTHRITIS
  24. BISOLVON [Concomitant]
     Indication: PHARYNGITIS
     Route: 048
     Dates: start: 20120519, end: 20120603
  25. FLAVERIC [Concomitant]
     Indication: PHARYNGITIS
     Route: 048
     Dates: start: 20120519, end: 20120603
  26. SALIPARA CODEINE [Concomitant]
     Indication: PHARYNGITIS
     Route: 048
     Dates: start: 20120519, end: 20120603
  27. ZITHROMAC [Concomitant]
     Indication: PHARYNGITIS
     Route: 048
     Dates: start: 20120519, end: 20120519
  28. SP TROCHE [Concomitant]
     Indication: PHARYNGITIS
     Route: 049
     Dates: start: 20120530, end: 20120603
  29. INTEBAN [Concomitant]
     Indication: PERIARTHRITIS
     Route: 062
     Dates: start: 20111015
  30. INTEBAN [Concomitant]
     Indication: PERIARTHRITIS

REACTIONS (3)
  - Myelopathy [Recovered/Resolved]
  - Condition aggravated [Recovered/Resolved]
  - Condition aggravated [Recovered/Resolved]
